FAERS Safety Report 13299576 (Version 1)
Quarter: 2017Q1

REPORT INFORMATION
  Report Type: Spontaneous
  Country: US (occurrence: US)
  Receive Date: 20170306
  Receipt Date: 20170306
  Transmission Date: 20170428
  Serious: Yes (Other)
  Sender: FDA-Public Use
  Company Number: US-ELI_LILLY_AND_COMPANY-US201608003922

PATIENT
  Sex: Male

DRUGS (5)
  1. CYMBALTA [Suspect]
     Active Substance: DULOXETINE HYDROCHLORIDE
     Indication: DEPRESSION
     Dosage: 20 MG, QD
     Route: 065
     Dates: start: 20140218, end: 20140225
  2. CYMBALTA [Suspect]
     Active Substance: DULOXETINE HYDROCHLORIDE
     Indication: ANXIETY
     Dosage: UNK, UNKNOWN
     Route: 065
     Dates: start: 20130708
  3. LITHIUM. [Concomitant]
     Active Substance: LITHIUM
     Indication: PRODUCT USED FOR UNKNOWN INDICATION
     Dosage: 1200 MG, QD
     Route: 065
  4. LAMICTAL [Concomitant]
     Active Substance: LAMOTRIGINE
     Indication: PRODUCT USED FOR UNKNOWN INDICATION
     Dosage: 25 MG, QD
     Route: 065
  5. CYMBALTA [Suspect]
     Active Substance: DULOXETINE HYDROCHLORIDE
     Dosage: 20 MG, EVERY OTHER DAY
     Route: 065
     Dates: start: 20140226, end: 20140318

REACTIONS (24)
  - Aphasia [Unknown]
  - Memory impairment [Unknown]
  - Agitation [Unknown]
  - Vertigo [Unknown]
  - Somnolence [Unknown]
  - Dizziness [Unknown]
  - Paraesthesia [Unknown]
  - Suicidal ideation [Unknown]
  - Dysphoria [Unknown]
  - Insomnia [Unknown]
  - Anger [Unknown]
  - Abnormal behaviour [Unknown]
  - Headache [Unknown]
  - Diarrhoea [Unknown]
  - Affect lability [Unknown]
  - Irritability [Unknown]
  - Seizure [Unknown]
  - Lethargy [Unknown]
  - Hallucination [Unknown]
  - Confusional state [Unknown]
  - Anxiety [Unknown]
  - Hyperhidrosis [Unknown]
  - Fatigue [Unknown]
  - Drug withdrawal syndrome [Unknown]
